FAERS Safety Report 6332353-1 (Version None)
Quarter: 2009Q3

REPORT INFORMATION
  Report Type: 
  Country: None (occurrence: None)
  Receive Date: 20090828
  Receipt Date: 20090825
  Transmission Date: 20100115
  Serious: Yes (Hospitalization)
  Sender: FDA-Public Use
  Company Number: BE-BRISTOL-MYERS SQUIBB COMPANY-14638068

PATIENT
  Age: 54 Year
  Sex: Female
  Weight: 45 kg

DRUGS (3)
  1. CETUXIMAB [Suspect]
     Indication: HEAD AND NECK CANCER
     Dosage: RECENT INFUSIONS:18MAY09.
     Route: 042
     Dates: start: 20090129
  2. CISPLATIN [Suspect]
     Indication: HEAD AND NECK CANCER
     Dosage: RECENT INFUSION:18MAY09.
     Route: 042
     Dates: start: 20090129
  3. RADIOTHERAPY [Suspect]
     Indication: HEAD AND NECK CANCER
     Dosage: RECENT TREATMENT:22MAY09, 2.0 GY
     Dates: start: 20090427

REACTIONS (2)
  - CATHETER RELATED INFECTION [None]
  - DECREASED APPETITE [None]
